FAERS Safety Report 4560975-7 (Version None)
Quarter: 2005Q1

REPORT INFORMATION
  Report Type: 
  Country: None (occurrence: None)
  Receive Date: 20050126
  Receipt Date: 20040422
  Transmission Date: 20050727
  Serious: No
  Sender: FDA-Public Use
  Company Number: US-BRISTOL-MYERS SQUIBB COMPANY-12567947

PATIENT
  Age: 79 Year
  Sex: Male
  Weight: 88 kg

DRUGS (4)
  1. GLUCOPHAGE [Suspect]
     Indication: DIABETES MELLITUS
     Route: 048
  2. ACTOS [Concomitant]
  3. NORVASC [Concomitant]
  4. DIURETIC [Concomitant]

REACTIONS (1)
  - ANAEMIA [None]
